FAERS Safety Report 5398209-6 (Version None)
Quarter: 2007Q3

REPORT INFORMATION
  Report Type: 
  Country: None (occurrence: None)
  Receive Date: 20070726
  Receipt Date: 20070720
  Transmission Date: 20080115
  Serious: Yes (Life-Threatening, Hospitalization)
  Sender: FDA-Public Use
  Company Number: AU-GENENTECH-244908

PATIENT
  Sex: Female
  Weight: 73 kg

DRUGS (5)
  1. RITUXIMAB [Suspect]
     Indication: B-CELL LYMPHOMA
     Dosage: 690 MG, UNK
     Route: 042
     Dates: start: 20060118
  2. CYCLOPHOSPHAMIDE [Suspect]
     Indication: B-CELL LYMPHOMA
     Dosage: 1370 MG, UNK
     Route: 042
     Dates: start: 20060118
  3. VINCRISTINE [Suspect]
     Indication: B-CELL LYMPHOMA
     Dosage: 20 MG, UNK
     Route: 042
     Dates: start: 20060118
  4. DOXORUBICIN HCL [Suspect]
     Indication: B-CELL LYMPHOMA
     Dosage: 90 MG, UNK
     Route: 042
     Dates: start: 20060118
  5. PREDNISONE TAB [Suspect]
     Indication: B-CELL LYMPHOMA
     Dosage: 100 MG, UNK
     Route: 048
     Dates: start: 20060118

REACTIONS (1)
  - PULMONARY EMBOLISM [None]
